FAERS Safety Report 14363240 (Version 5)
Quarter: 2018Q2

REPORT INFORMATION
  Report Type: Report from Study
  Country: US (occurrence: US)
  Receive Date: 20180108
  Receipt Date: 20180511
  Transmission Date: 20180711
  Serious: Yes (Hospitalization, Other)
  Sender: FDA-Public Use
  Company Number: US-AMGEN-USASL2016176117

PATIENT
  Age: 71 Year
  Sex: Male

DRUGS (5)
  1. PREDNISONE. [Concomitant]
     Active Substance: PREDNISONE
     Dosage: 40 MG, UNK
  2. NPLATE [Suspect]
     Active Substance: ROMIPLOSTIM
     Dosage: 200 MCG, QWK
     Route: 065
  3. NPLATE [Suspect]
     Active Substance: ROMIPLOSTIM
     Dosage: 500 MCG, QWK
     Route: 065
  4. NPLATE [Suspect]
     Active Substance: ROMIPLOSTIM
     Dosage: 250 MCG, QWK
     Route: 065
  5. NPLATE [Suspect]
     Active Substance: ROMIPLOSTIM
     Indication: IMMUNE THROMBOCYTOPENIC PURPURA
     Dosage: 225 MCG, QWK
     Route: 065
     Dates: start: 20140512

REACTIONS (24)
  - Lung cancer metastatic [Unknown]
  - Blood blister [Unknown]
  - Incoherent [Unknown]
  - Laceration [Unknown]
  - Pulmonary air leakage [Unknown]
  - Contusion [Unknown]
  - Memory impairment [Unknown]
  - Hyporesponsive to stimuli [Unknown]
  - Platelet count decreased [Recovering/Resolving]
  - Dyspnoea exertional [Recovering/Resolving]
  - Haematochezia [Unknown]
  - Platelet count abnormal [Not Recovered/Not Resolved]
  - Hepatic cancer [Unknown]
  - Spinal cord neoplasm [Unknown]
  - Bloody discharge [Unknown]
  - Angina bullosa haemorrhagica [Unknown]
  - Petechiae [Unknown]
  - Pneumothorax [Not Recovered/Not Resolved]
  - Weight decreased [Unknown]
  - Bronchopulmonary aspergillosis [Not Recovered/Not Resolved]
  - Gastrointestinal haemorrhage [Recovered/Resolved]
  - Skin cancer [Unknown]
  - Drug effect incomplete [Unknown]
  - Skin haemorrhage [Unknown]

NARRATIVE: CASE EVENT DATE: 2015
